FAERS Safety Report 7744611-4 (Version None)
Quarter: 2011Q3

REPORT INFORMATION
  Report Type: 
  Country: None (occurrence: None)
  Receive Date: 20110912
  Receipt Date: 20110830
  Transmission Date: 20111222
  Serious: Yes (Other)
  Sender: FDA-Public Use
  Company Number: US-BAYER-2011-082766

PATIENT
  Age: 15 Year
  Sex: Female

DRUGS (1)
  1. RID 1-2-3 SYSTEM [Suspect]
     Indication: LICE INFESTATION
     Dosage: UNK
     Route: 061

REACTIONS (3)
  - HEADACHE [None]
  - MENTAL IMPAIRMENT [None]
  - RHINORRHOEA [None]
